FAERS Safety Report 8747646 (Version 2)
Quarter: 2013Q4

REPORT INFORMATION
  Report Type: Spontaneous
  Country: FR (occurrence: FR)
  Receive Date: 20120827
  Receipt Date: 20131031
  Transmission Date: 20140711
  Serious: Yes (Hospitalization)
  Sender: FDA-Public Use
  Company Number: FR-MERCK-1208FRA008334

PATIENT
  Age: 44 Year
  Sex: Female

DRUGS (2)
  1. AERIUS [Suspect]
     Indication: EYELID OEDEMA
     Dosage: UNK
     Route: 048
     Dates: start: 20120726
  2. AZANTAC [Suspect]
     Indication: PRODUCT USED FOR UNKNOWN INDICATION
     Dosage: UNK
     Route: 048
     Dates: start: 20120726

REACTIONS (1)
  - Neutropenia [Recovering/Resolving]
